FAERS Safety Report 8900421 (Version 2)
Quarter: 2012Q4

REPORT INFORMATION
  Report Type: 
  Country: US (occurrence: US)
  Receive Date: 20121109
  Receipt Date: 20121112
  Transmission Date: 20130627
  Serious: Yes (Other)
  Sender: FDA-Public Use
  Company Number: US-JNJFOC-20120808246

PATIENT
  Age: 29 Year
  Sex: Female

DRUGS (3)
  1. NICOTINE POLACRILEX GUM 2 MG [Suspect]
     Indication: SMOKING CESSATION THERAPY
     Route: 048
     Dates: start: 20120807, end: 20120809
  2. NICOTINE [Suspect]
     Indication: SMOKING CESSATION THERAPY
     Route: 048
  3. NICODERM CQ [Suspect]
     Indication: SMOKING CESSATION THERAPY
     Route: 062
     Dates: start: 2012

REACTIONS (7)
  - Premature baby [Not Recovered/Not Resolved]
  - Exposure during pregnancy [Recovered/Resolved]
  - Gingival inflammation [Recovered/Resolved]
  - Gingival bleeding [Recovered/Resolved]
  - Application site erythema [Recovered/Resolved]
  - Application site irritation [Recovered/Resolved]
  - Nausea [Recovered/Resolved]
